FAERS Safety Report 15358290 (Version 1)
Quarter: 2018Q3

REPORT INFORMATION
  Report Type: Spontaneous
  Country: US (occurrence: US)
  Receive Date: 20180906
  Receipt Date: 20180906
  Transmission Date: 20181010
  Serious: No
  Sender: FDA-Public Use
  Company Number: US-PERRIGO-18US000068

PATIENT
  Age: 66 Year
  Sex: Female
  Weight: 61.22 kg

DRUGS (3)
  1. PROGESTERONE. [Concomitant]
     Active Substance: PROGESTERONE
     Indication: MENOPAUSE
     Dosage: UNKNOWN, UNKNOWN
     Route: 065
     Dates: start: 2010
  2. EVAMIST [Suspect]
     Active Substance: ESTRADIOL
     Indication: BLOOD OESTROGEN DECREASED
     Dosage: 1.53 MG, QD TO EACH FOREARM
     Route: 062
     Dates: start: 2010
  3. EVAMIST [Suspect]
     Active Substance: ESTRADIOL
     Dosage: UNK, QD
     Route: 062
     Dates: start: 20171213, end: 20171229

REACTIONS (1)
  - Underdose [Recovered/Resolved]

NARRATIVE: CASE EVENT DATE: 20171213
